FAERS Safety Report 4555566-8 (Version None)
Quarter: 2005Q1

REPORT INFORMATION
  Report Type: 
  Country: None (occurrence: None)
  Receive Date: 20050118
  Receipt Date: 20050118
  Transmission Date: 20050727
  Serious: Yes (Other)
  Sender: FDA-Public Use
  Company Number: None

PATIENT
  Sex: Female
  Weight: 78.9259 kg

DRUGS (1)
  1. VASOTEC [Suspect]
     Indication: HYPERTENSION
     Dosage: 5 MG PO QD
     Route: 048
     Dates: start: 20041001, end: 20041201

REACTIONS (1)
  - RASH [None]
